FAERS Safety Report 13678861 (Version 1)
Quarter: 2017Q2

REPORT INFORMATION
  Report Type: Spontaneous
  Country: GB (occurrence: GB)
  Receive Date: 20170622
  Receipt Date: 20170622
  Transmission Date: 20170830
  Serious: Yes (Hospitalization, Other)
  Sender: FDA-Public Use
  Company Number: GB-HERITAGE PHARMACEUTICALS-2017HTG00159

PATIENT
  Age: 46 Year
  Sex: Male
  Weight: 82 kg

DRUGS (3)
  1. INDOMETHACIN. [Suspect]
     Active Substance: INDOMETHACIN
     Indication: GOUT
     Dosage: 75 MG, UP TO TWICE A DAY
     Route: 048
     Dates: start: 20150401, end: 20160315
  2. COLCHICINE. [Suspect]
     Active Substance: COLCHICINE
     Indication: GOUT
     Dosage: 500 UNK, 2X/DAY
     Route: 048
     Dates: start: 20150301, end: 20160315
  3. ALLOPURINOL. [Suspect]
     Active Substance: ALLOPURINOL
     Indication: GOUT
     Dosage: 100 MG, 1X/DAY
     Route: 048
     Dates: start: 20150401, end: 20160315

REACTIONS (6)
  - Vomiting [Unknown]
  - Abnormal loss of weight [Unknown]
  - Sepsis [Unknown]
  - Pancreatic failure [Unknown]
  - Cholecystectomy [Recovered/Resolved]
  - Type 1 diabetes mellitus [Unknown]

NARRATIVE: CASE EVENT DATE: 201602
